FAERS Safety Report 19675482 (Version 2)
Quarter: 2024Q4

REPORT INFORMATION
  Report Type: Spontaneous
  Country: US (occurrence: US)
  Receive Date: 20210809
  Receipt Date: 20241003
  Transmission Date: 20250115
  Serious: No
  Sender: GLAXOSMITHKLINE
  Company Number: US-GSKCCFUS-CASE-01128735_AE-66437

PATIENT
  Sex: Male

DRUGS (1)
  1. BENLYSTA [Suspect]
     Active Substance: BELIMUMAB
     Indication: Systemic lupus erythematosus
     Dosage: 1 DF
     Dates: start: 20210805

REACTIONS (8)
  - Accidental exposure to product [Unknown]
  - Exposure via skin contact [Unknown]
  - Wrong technique in device usage process [Unknown]
  - Abdominal discomfort [Unknown]
  - Nausea [Unknown]
  - Diarrhoea [Not Recovered/Not Resolved]
  - Abdominal pain upper [Not Recovered/Not Resolved]
  - Epigastric discomfort [Not Recovered/Not Resolved]
